FAERS Safety Report 4351055-4 (Version None)
Quarter: 2004Q2

REPORT INFORMATION
  Report Type: 
  Country: None (occurrence: None)
  Receive Date: 20040427
  Receipt Date: 20040331
  Transmission Date: 20050107
  Serious: Yes (Death, Hospitalization)
  Sender: FDA-Public Use
  Company Number: JP-JNJFOC-20040304440

PATIENT
  Age: 69 Year
  Sex: Male

DRUGS (10)
  1. DURAGESIC [Suspect]
     Indication: CANCER PAIN
     Dosage: SEE IMAGE
     Route: 042
     Dates: start: 20040113, end: 20040117
  2. DURAGESIC [Suspect]
     Indication: CANCER PAIN
     Dosage: SEE IMAGE
     Route: 042
     Dates: start: 20040117, end: 20040123
  3. DURAGESIC [Suspect]
     Indication: CANCER PAIN
     Dosage: SEE IMAGE
     Route: 042
     Dates: start: 20040124, end: 20040225
  4. DURAGESIC [Suspect]
     Indication: CANCER PAIN
     Dosage: SEE IMAGE
     Route: 042
     Dates: start: 20040225, end: 20040320
  5. DICLOFENAC SODIUM [Concomitant]
  6. METOCLOPRAMIDE [Concomitant]
  7. SENNOSIDE (ALL OTHER THERAPEUTIC PRODUCTS) [Concomitant]
  8. MAGNESIUM OXIDE (MAGNESIUM OXIDE) [Concomitant]
  9. LAFUTIDINE (ALL OTHER THERAPEUTIC PRODUCTS) [Concomitant]
  10. LOXOPROFEN SODIUM (LOXOPROFEN SODIUM) [Concomitant]

REACTIONS (6)
  - COMA [None]
  - DECREASED APPETITE [None]
  - GENERAL PHYSICAL HEALTH DETERIORATION [None]
  - HEPATIC CANCER METASTATIC [None]
  - HEPATIC ENCEPHALOPATHY [None]
  - HEPATIC FAILURE [None]
